FAERS Safety Report 4510572-4 (Version None)
Quarter: 2004Q4

REPORT INFORMATION
  Report Type: 
  Country: None (occurrence: None)
  Receive Date: 20041122
  Receipt Date: 20041115
  Transmission Date: 20050328
  Serious: Yes (Other)
  Sender: FDA-Public Use
  Company Number: GBWYE163701NOV04

PATIENT
  Age: 32 Year
  Sex: Female

DRUGS (9)
  1. RAPAMUNE [Suspect]
     Indication: RENAL TRANSPLANT
     Dosage: SEE IMAGE
     Route: 048
     Dates: start: 20040202, end: 20040101
  2. RAPAMUNE [Suspect]
     Indication: RENAL TRANSPLANT
     Dosage: SEE IMAGE
     Route: 048
     Dates: start: 20031118, end: 20040201
  3. RAPAMUNE [Suspect]
     Indication: RENAL TRANSPLANT
     Dosage: SEE IMAGE
     Route: 048
     Dates: start: 20040101, end: 20041020
  4. PREDNISOLONE [Concomitant]
  5. AZATHIOPRINE [Concomitant]
  6. ALFACALCIDOL (ALFACALCIDOL) [Concomitant]
  7. RANITIDINE [Concomitant]
  8. FERROUS SULPHATE (FERROUS SULPHATE) [Concomitant]
  9. TACROLIMUS (TACROLIMUS) [Concomitant]

REACTIONS (3)
  - DRUG INEFFECTIVE [None]
  - DRUG LEVEL DECREASED [None]
  - MIGRAINE [None]
